FAERS Safety Report 8615011-X (Version None)
Quarter: 2012Q3

REPORT INFORMATION
  Report Type: 
  Country: None (occurrence: None)
  Receive Date: 20120814
  Receipt Date: 20120814
  Transmission Date: 20120928
  Serious: Yes (Hospitalization)
  Sender: FDA-Public Use
  Company Number: None

PATIENT
  Age: 65 Year
  Sex: Male
  Weight: 143.2 kg

DRUGS (4)
  1. LISINOPRIL [Suspect]
     Indication: HYPERTENSION
     Dosage: 40 MG EVERY DAY PO
     Route: 048
     Dates: start: 20120326, end: 20120425
  2. LISINOPRIL [Suspect]
     Indication: CARDIAC FAILURE CONGESTIVE
     Dosage: 40 MG EVERY DAY PO
     Route: 048
     Dates: start: 20120326, end: 20120425
  3. SPIRONOLACTONE [Suspect]
     Indication: HYPERTENSION
     Dosage: 12.5 MG EVERY DAY PO
     Route: 048
     Dates: start: 20120330, end: 20120425
  4. SPIRONOLACTONE [Suspect]
     Indication: CARDIAC FAILURE
     Dosage: 12.5 MG EVERY DAY PO
     Route: 048
     Dates: start: 20120330, end: 20120425

REACTIONS (2)
  - HYPERKALAEMIA [None]
  - FLUID OVERLOAD [None]
